FAERS Safety Report 5375341-4 (Version None)
Quarter: 2007Q2

REPORT INFORMATION
  Report Type: 
  Country: None (occurrence: None)
  Receive Date: 20070629
  Receipt Date: 20070622
  Transmission Date: 20071010
  Serious: Yes (Hospitalization)
  Sender: FDA-Public Use
  Company Number: DE-ASTRAZENECA-2007PK01276

PATIENT
  Age: 25 Year
  Sex: Female

DRUGS (3)
  1. SEROQUEL [Suspect]
     Route: 048
     Dates: start: 20060301, end: 20070313
  2. ERGENYL CHRONO [Suspect]
     Route: 048
     Dates: start: 20061201, end: 20070319
  3. LAMOTRIGINE [Suspect]
     Route: 048

REACTIONS (1)
  - NEUTROPENIA [None]
